FAERS Safety Report 5867668-4 (Version None)
Quarter: 2008Q3

REPORT INFORMATION
  Report Type: 
  Country: None (occurrence: None)
  Receive Date: 20080902
  Receipt Date: 20080109
  Transmission Date: 20090109
  Serious: No
  Sender: FDA-Public Use
  Company Number: US-ABBOTT-08P-163-0433373-00

PATIENT
  Sex: Male

DRUGS (5)
  1. DEPAKOTE ER [Suspect]
     Indication: BIPOLAR DISORDER
     Route: 048
     Dates: start: 20050201
  2. DEPAKOTE ER [Suspect]
     Route: 048
  3. DEPAKOTE ER [Suspect]
     Route: 048
     Dates: end: 20050401
  4. DEPAKOTE ER [Suspect]
     Route: 048
     Dates: start: 20050401, end: 20051201
  5. RISPERIDONE [Interacting]
     Indication: DRUG USE FOR UNKNOWN INDICATION

REACTIONS (5)
  - DRUG INEFFECTIVE [None]
  - DRUG INTERACTION [None]
  - DYSURIA [None]
  - ENURESIS [None]
  - IRRITABILITY [None]
